FAERS Safety Report 10314861 (Version 2)
Quarter: 2014Q4

REPORT INFORMATION
  Report Type: Spontaneous
  Country: JP (occurrence: JP)
  Receive Date: 20140718
  Receipt Date: 20141110
  Transmission Date: 20150528
  Serious: Yes (Other)
  Sender: FDA-Public Use
  Company Number: PHHY2013JP158092

PATIENT
  Age: 76 Year
  Sex: Male
  Weight: 54 kg

DRUGS (2)
  1. GLIVEC [Suspect]
     Active Substance: IMATINIB MESYLATE
     Indication: NEOADJUVANT THERAPY
     Dosage: 400 MG, QD
     Route: 048
     Dates: start: 20131108, end: 20131120
  2. GLIVEC [Suspect]
     Active Substance: IMATINIB MESYLATE
     Indication: GASTROINTESTINAL STROMAL TUMOUR
     Dosage: 400 MG, QD
     Route: 048
     Dates: start: 20120717, end: 20121001

REACTIONS (6)
  - Rash [Recovering/Resolving]
  - Vomiting [Recovering/Resolving]
  - Metastases to liver [Unknown]
  - Nausea [Unknown]
  - Oedema [Recovering/Resolving]
  - Pleural effusion [Recovering/Resolving]

NARRATIVE: CASE EVENT DATE: 20120927
